FAERS Safety Report 5694204-8 (Version None)
Quarter: 2008Q2

REPORT INFORMATION
  Report Type: 
  Country: None (occurrence: None)
  Receive Date: 20080402
  Receipt Date: 20080317
  Transmission Date: 20081010
  Serious: Yes (Death, Hospitalization, Other)
  Sender: FDA-Public Use
  Company Number: 2008US000178

PATIENT
  Age: 10 Month
  Sex: Female

DRUGS (5)
  1. AMBISOME [Suspect]
     Indication: ZYGOMYCOSIS
     Dosage: 50 MG, UID/QD, IV NOS; 50 MG, UID/QD, IV NOS
     Route: 042
     Dates: start: 20050520, end: 20050607
  2. AMBISOME [Suspect]
     Indication: ZYGOMYCOSIS
     Dosage: 50 MG, UID/QD, IV NOS; 50 MG, UID/QD, IV NOS
     Route: 042
     Dates: start: 20050614, end: 20050705
  3. VITAMIN B12 NOS (VITAMIN B12 NOS) [Concomitant]
  4. PYRIDOXINE (PYRIDOXINE) [Concomitant]
  5. GRANULOCYTE COLONY STIMULATING FACTOR (GRANULOCYTE COLONY STIMULATING [Concomitant]

REACTIONS (8)
  - ACUTE RESPIRATORY DISTRESS SYNDROME [None]
  - DYSPLASIA [None]
  - MULTI-ORGAN FAILURE [None]
  - NEPHROLITHIASIS [None]
  - NEUROLOGICAL SYMPTOM [None]
  - PEARSON'S SYNDROME [None]
  - PNEUMOCYSTIS JIROVECI PNEUMONIA [None]
  - RENAL TUBULAR DISORDER [None]
